FAERS Safety Report 8065401-1 (Version None)
Quarter: 2012Q1

REPORT INFORMATION
  Report Type: 
  Country: None (occurrence: None)
  Receive Date: 20120124
  Receipt Date: 20120120
  Transmission Date: 20120608
  Serious: Yes (Hospitalization)
  Sender: FDA-Public Use
  Company Number: US-AMGEN-USASP2012004273

PATIENT
  Age: 68 Year
  Sex: Female

DRUGS (2)
  1. NEUPOGEN [Suspect]
     Indication: NEUTROPENIA
     Dates: start: 20111201
  2. ANTINEOPLASTIC AGENTS [Concomitant]

REACTIONS (1)
  - GALLBLADDER DISORDER [None]
